FAERS Safety Report 6253782-0 (Version None)
Quarter: 2009Q3

REPORT INFORMATION
  Report Type: 
  Country: None (occurrence: None)
  Receive Date: 20090702
  Receipt Date: 20090625
  Transmission Date: 20100115
  Serious: Yes (Other)
  Sender: FDA-Public Use
  Company Number: US-JNJCH-2009017679

PATIENT
  Age: 32 Year
  Sex: Male
  Weight: 108.9 kg

DRUGS (1)
  1. ZYRTEC [Suspect]
     Indication: ALLERGY TO ANIMAL
     Route: 048

REACTIONS (4)
  - BLOOD PRESSURE INCREASED [None]
  - DEPRESSION [None]
  - HEART RATE INCREASED [None]
  - MOOD SWINGS [None]
